FAERS Safety Report 7243607-9 (Version None)
Quarter: 2011Q1

REPORT INFORMATION
  Report Type: 
  Country: None (occurrence: None)
  Receive Date: 20110125
  Receipt Date: 20110114
  Transmission Date: 20110831
  Serious: Yes (Hospitalization, Other)
  Sender: FDA-Public Use
  Company Number: PHHY2011FR03306

PATIENT
  Sex: Female

DRUGS (4)
  1. VOLTAREN [Suspect]
     Indication: RHEUMATOID ARTHRITIS
     Dosage: 50 TO 100 MG DAILY
     Route: 048
     Dates: end: 20100423
  2. BARACLUDE [Suspect]
     Dosage: 0.5 MG, QD
     Dates: start: 20100701
  3. QUESTRAN [Suspect]
     Dosage: UNK
  4. ARAVA [Suspect]
     Indication: RHEUMATOID ARTHRITIS
     Dosage: 20 MG, QD
     Dates: start: 20010101, end: 20100401

REACTIONS (9)
  - BLOOD ALKALINE PHOSPHATASE INCREASED [None]
  - HYPOGAMMAGLOBULINAEMIA [None]
  - HYPOPROTEINAEMIA [None]
  - DIARRHOEA [None]
  - TRANSAMINASES INCREASED [None]
  - SCIATICA [None]
  - CYTOLYTIC HEPATITIS [None]
  - CHOLESTATIC LIVER INJURY [None]
  - GAMMA-GLUTAMYLTRANSFERASE INCREASED [None]
